FAERS Safety Report 8576333 (Version 3)
Quarter: 2012Q4

REPORT INFORMATION
  Report Type: 
  Country: JP (occurrence: JP)
  Receive Date: 20120523
  Receipt Date: 20121022
  Transmission Date: 20130627
  Serious: Yes (Hospitalization)
  Sender: FDA-Public Use
  Company Number: JP-EISAI INC-E7389-02469-SPO-JP

PATIENT
  Age: 25 Year
  Sex: Female
  Weight: 52 kg

DRUGS (7)
  1. HALAVEN [Suspect]
     Indication: BREAST CANCER RECURRENT
     Route: 041
     Dates: start: 20120412, end: 20120502
  2. DEXART [Suspect]
     Indication: ANTIEMETIC SUPPORTIVE CARE
     Route: 042
     Dates: start: 20120412, end: 20120502
  3. DECADRON [Suspect]
     Indication: ANTIEMETIC SUPPORTIVE CARE
     Route: 048
     Dates: start: 20120412, end: 20120414
  4. STRONGER NEO-MINOPHAGEN C [Concomitant]
     Indication: HEPATIC FUNCTION DISORDER
     Route: 042
     Dates: start: 20120412, end: 20120502
  5. ONDANSETRON [Concomitant]
     Indication: ANTIEMETIC SUPPORTIVE CARE
     Route: 042
     Dates: start: 20120412, end: 20120502
  6. GRAN [Concomitant]
     Indication: NEUTROPENIA
     Route: 042
     Dates: start: 20120426, end: 20120426
  7. URSO [Concomitant]
     Indication: HEPATIC FUNCTION DISORDER
     Route: 048
     Dates: start: 20120320

REACTIONS (3)
  - Pancreatitis [Recovered/Resolved]
  - Neutropenia [Recovered/Resolved]
  - Leukopenia [Recovered/Resolved]
